FAERS Safety Report 6237651-8 (Version None)
Quarter: 2009Q2

REPORT INFORMATION
  Report Type: 
  Country: None (occurrence: None)
  Receive Date: 20090619
  Receipt Date: 20090611
  Transmission Date: 20091009
  Serious: Yes (Hospitalization)
  Sender: FDA-Public Use
  Company Number: US-AMGEN-QUU351366

PATIENT
  Sex: Female

DRUGS (1)
  1. ENBREL [Suspect]
     Indication: RHEUMATOID ARTHRITIS
     Route: 058

REACTIONS (7)
  - DIARRHOEA [None]
  - FALL [None]
  - FRACTURED SACRUM [None]
  - INCORRECT STORAGE OF DRUG [None]
  - NAUSEA [None]
  - RASH ERYTHEMATOUS [None]
  - VOMITING [None]
